FAERS Safety Report 5761980-5 (Version None)
Quarter: 2008Q2

REPORT INFORMATION
  Report Type: 
  Country: None (occurrence: None)
  Receive Date: 20080603
  Receipt Date: 20080520
  Transmission Date: 20081010
  Serious: Yes (Hospitalization)
  Sender: FDA-Public Use
  Company Number: 100#08#2008-02817

PATIENT
  Age: 7 Year
  Sex: Male

DRUGS (4)
  1. IBUPROFEN [Suspect]
     Indication: JUVENILE ARTHRITIS
     Dosage: 8-10 MG/KG 3 TIMES DAILY
  2. ACETYLSALICYLIC ACID SRT [Suspect]
     Indication: DRUG USE FOR UNKNOWN INDICATION
     Dosage: 5 MG/KG
  3. IMMUNE GLOBULIN (HUMAN) [Concomitant]
  4. ANTIRHEUMATIC DRUGS (ANTIRHEUMATIC DRUGS) [Concomitant]

REACTIONS (4)
  - CORONARY ARTERY OCCLUSION [None]
  - DISEASE PROGRESSION [None]
  - DRUG INTERACTION [None]
  - SINGLE PHOTON EMISSION COMPUTERISED TOMOGRAM ABNORMAL [None]
